FAERS Safety Report 6849598-4 (Version None)
Quarter: 2010Q3

REPORT INFORMATION
  Report Type: 
  Country: None (occurrence: None)
  Receive Date: 20100716
  Receipt Date: 20071002
  Transmission Date: 20110219
  Serious: No
  Sender: FDA-Public Use
  Company Number: US-PFIZER INC-2007083319

PATIENT
  Sex: Male
  Weight: 120.45 kg

DRUGS (7)
  1. CHANTIX [Suspect]
     Indication: SMOKING CESSATION THERAPY
     Dates: start: 20070801
  2. SYNTHROID [Concomitant]
  3. SEROQUEL [Concomitant]
  4. ABILIFY [Concomitant]
  5. LITHIUM [Concomitant]
  6. PAXIL [Concomitant]
  7. CYMBALTA [Concomitant]

REACTIONS (2)
  - DYSGEUSIA [None]
  - FOLLICULITIS [None]
